FAERS Safety Report 13767984 (Version 3)
Quarter: 2018Q3

REPORT INFORMATION
  Report Type: Report from Study
  Country: IN (occurrence: IN)
  Receive Date: 20170719
  Receipt Date: 20180919
  Transmission Date: 20181010
  Serious: Yes (Other)
  Sender: FDA-Public Use
  Company Number: IN-INCYTE CORPORATION-2016IN000807

PATIENT

DRUGS (4)
  1. JAKAVI [Suspect]
     Active Substance: RUXOLITINIB
     Indication: POLYCYTHAEMIA VERA
     Dosage: 10 MG, BID
     Route: 048
     Dates: start: 201504
  2. JAKAVI [Suspect]
     Active Substance: RUXOLITINIB
     Dosage: 10 MG, BID
     Route: 048
  3. JAKAVI [Suspect]
     Active Substance: RUXOLITINIB
     Dosage: 5 MG, UNK
     Route: 065
     Dates: start: 201807
  4. JAKAVI [Suspect]
     Active Substance: RUXOLITINIB
     Dosage: 5 MG, UNK
     Route: 065
     Dates: start: 201710, end: 201711

REACTIONS (8)
  - Pyrexia [Recovered/Resolved]
  - White blood cell count decreased [Recovered/Resolved]
  - Insomnia [Recovering/Resolving]
  - Urinary tract infection [Recovered/Resolved]
  - Pyrexia [Recovered/Resolved]
  - Sepsis [Recovered/Resolved]
  - Gastritis [Recovering/Resolving]
  - Haemoglobin decreased [Recovered/Resolved]

NARRATIVE: CASE EVENT DATE: 201602
